FAERS Safety Report 7705213-9 (Version None)
Quarter: 2011Q3

REPORT INFORMATION
  Report Type: 
  Country: None (occurrence: None)
  Receive Date: 20110818
  Receipt Date: 20110810
  Transmission Date: 20111222
  Serious: Yes (Hospitalization)
  Sender: FDA-Public Use
  Company Number: 2009AL002045

PATIENT
  Age: 53 Year
  Sex: Female

DRUGS (24)
  1. BUPROPION HCL [Concomitant]
  2. ESTROGENS CONJUGATED [Concomitant]
  3. CIPROFLOXACIN [Concomitant]
  4. ELAVIL [Concomitant]
  5. DIGOXIN [Suspect]
     Indication: ATRIAL FIBRILLATION
     Dosage: 125 MG; QD; O
     Route: 048
     Dates: start: 20041228, end: 20080501
  6. AZITHROMYCIN [Concomitant]
  7. LEVAQUIN [Concomitant]
  8. WELLBUTRIN [Concomitant]
  9. LISINOPRIL [Concomitant]
  10. VARENICLINE [Concomitant]
  11. LANOXIN [Suspect]
     Dosage: .25 MG
     Dates: start: 20080507, end: 20090816
  12. TRAMADOL HCL [Concomitant]
  13. LEXAPRO [Concomitant]
  14. PHENAZOPYRIDINE HCL TAB [Concomitant]
  15. FLECAINIDE ACETATE [Concomitant]
  16. LORTAB [Concomitant]
  17. AMBIEN [Concomitant]
  18. TYLENOL-500 [Concomitant]
  19. FLEXERIL [Concomitant]
  20. ALPRAZOLAM [Concomitant]
  21. PREGABALIN [Concomitant]
  22. ASPIRIN [Concomitant]
  23. XANAX [Concomitant]
  24. CARDIZEM [Concomitant]

REACTIONS (32)
  - DYSPNOEA [None]
  - PULMONARY FIBROSIS [None]
  - ANXIETY [None]
  - HYPERHIDROSIS [None]
  - PNEUMONIA [None]
  - DIARRHOEA [None]
  - DIZZINESS [None]
  - DIASTOLIC DYSFUNCTION [None]
  - PAIN [None]
  - DEFORMITY [None]
  - COUGH [None]
  - MUSCLE SPASMS [None]
  - CERVICAL SPINAL STENOSIS [None]
  - AMNESIA [None]
  - ATRIAL FLUTTER [None]
  - VENTRICULAR EXTRASYSTOLES [None]
  - STRESS [None]
  - ECONOMIC PROBLEM [None]
  - PANIC ATTACK [None]
  - LIPOMA [None]
  - WEIGHT DECREASED [None]
  - VISION BLURRED [None]
  - TRICUSPID VALVE INCOMPETENCE [None]
  - SUPRAVENTRICULAR EXTRASYSTOLES [None]
  - PAIN IN EXTREMITY [None]
  - ATRIAL FIBRILLATION [None]
  - PULMONARY GRANULOMA [None]
  - HEADACHE [None]
  - CONFUSIONAL STATE [None]
  - ASTHENIA [None]
  - PALPITATIONS [None]
  - LYMPHADENOPATHY MEDIASTINAL [None]
